FAERS Safety Report 14509007 (Version 1)
Quarter: 2018Q1

REPORT INFORMATION
  Report Type: Spontaneous
  Country: US (occurrence: US)
  Receive Date: 20180209
  Receipt Date: 20180209
  Transmission Date: 20180509
  Serious: No
  Sender: FDA-Public Use
  Company Number: US-B.I. PHARMACEUTICALS,INC./RIDGEFIELD-2018-BI-006825

PATIENT
  Age: 56 Year
  Sex: Male

DRUGS (8)
  1. SYNTHROID [Concomitant]
     Active Substance: LEVOTHYROXINE SODIUM
     Indication: THYROIDECTOMY
     Dosage: STRENGTH: 200MCG; FORMULATION: TABLET
     Route: 048
     Dates: start: 2008
  2. ATORVASTATIN [Concomitant]
     Active Substance: ATORVASTATIN
     Indication: BLOOD CHOLESTEROL INCREASED
     Dosage: STRENGTH: 20MG; FORMULATION: TABLET
     Route: 048
     Dates: start: 1998
  3. PANTOZOL [Concomitant]
     Active Substance: PANTOPRAZOLE SODIUM
     Indication: GASTROOESOPHAGEAL REFLUX DISEASE
     Dosage: STRENGTH: 20MG; FORMULATION: TABLET
     Route: 048
     Dates: start: 2016
  4. LISINOPRIL. [Concomitant]
     Active Substance: LISINOPRIL
     Indication: CEREBROVASCULAR ACCIDENT PROPHYLAXIS
  5. LISINOPRIL. [Concomitant]
     Active Substance: LISINOPRIL
     Indication: HYPERTENSION
     Dosage: ONCE DAILY;  FORM STRENGTH: 2.5MG; FORMULATION: TABLET
     Route: 048
     Dates: start: 1998
  6. MOBIC [Suspect]
     Active Substance: MELOXICAM
     Indication: OSTEOARTHRITIS
     Dosage: STRENGTH: 7.5 MG; ADMINISTRATION CORRECT? YES; ACTION TAKEN: DOSE NOT CHANGED
     Route: 048
     Dates: start: 20180122
  7. MOBIC [Suspect]
     Active Substance: MELOXICAM
     Indication: ARTHRALGIA
  8. TESTOSTERONE. [Concomitant]
     Active Substance: TESTOSTERONE
     Indication: HORMONE REPLACEMENT THERAPY
     Dosage: STRENGTH: 1.0%
     Route: 061
     Dates: start: 2008

REACTIONS (1)
  - Drug effect incomplete [Not Recovered/Not Resolved]

NARRATIVE: CASE EVENT DATE: 20180126
